FAERS Safety Report 4541555-6 (Version None)
Quarter: 2004Q4

REPORT INFORMATION
  Report Type: 
  Country: None (occurrence: None)
  Receive Date: 20041227
  Receipt Date: 20041215
  Transmission Date: 20050328
  Serious: Yes (Other)
  Sender: FDA-Public Use
  Company Number: 2004113307

PATIENT
  Age: 20 Year
  Sex: Male
  Weight: 80 kg

DRUGS (2)
  1. GEODON [Suspect]
     Indication: PARANOIA
     Dosage: 20 MG (20 MG, 1 IN 1 D), ORAL
     Route: 048
     Dates: start: 20040101, end: 20040101
  2. ALL OTHER THERAPEUTIC PRODUCTS (ALL OTHER THERAPEUTIC PRODUCTS) [Suspect]
     Indication: ILL-DEFINED DISORDER
     Dates: start: 20040101

REACTIONS (6)
  - BLEPHAROSPASM [None]
  - EXTRAPYRAMIDAL DISORDER [None]
  - EYE DISORDER [None]
  - EYE IRRITATION [None]
  - EYE MOVEMENT DISORDER [None]
  - TARDIVE DYSKINESIA [None]
